FAERS Safety Report 12728169 (Version 1)
Quarter: 2016Q3

REPORT INFORMATION
  Report Type: Spontaneous
  Country: US (occurrence: US)
  Receive Date: 20160909
  Receipt Date: 20160909
  Transmission Date: 20161109
  Serious: No
  Sender: FDA-Public Use
  Company Number: US-BECTON DICKINSON-2016BDN00013

PATIENT
  Sex: Male
  Weight: 112.93 kg

DRUGS (5)
  1. PRINIVIL/ZESTRIL [Concomitant]
     Dosage: 10 MG, 1X/DAY
     Route: 048
  2. MULTIVITAMIN [Concomitant]
     Active Substance: VITAMINS
  3. ALCOHOL SCRUB [Suspect]
     Active Substance: ALCOHOL
  4. GLUCOSAMINE SULFATE-MSM [Concomitant]
     Dosage: 6 CAPSULES, 1X/DAY
     Route: 048
  5. CHLORAPREP WITH TINT [Suspect]
     Active Substance: CHLORHEXIDINE GLUCONATE\ISOPROPYL ALCOHOL
     Indication: INFECTION PROPHYLAXIS
     Dosage: 10.5 ML, TWICE TO RIGHT SHOULDER INCLUDING THE AXILLARY AREA
     Route: 061
     Dates: start: 20151210, end: 20151210

REACTIONS (3)
  - Rash erythematous [Recovered/Resolved]
  - Incision site vesicles [None]
  - Blister [Recovered/Resolved]
